FAERS Safety Report 4639271-5 (Version None)
Quarter: 2005Q2

REPORT INFORMATION
  Report Type: 
  Country: None (occurrence: None)
  Receive Date: 20050418
  Receipt Date: 20050407
  Transmission Date: 20051028
  Serious: Yes (Hospitalization)
  Sender: FDA-Public Use
  Company Number: 05P-087-0295122-00

PATIENT
  Age: 56 Year
  Sex: Male

DRUGS (10)
  1. KALETRA SOFT GELATIN CAPSULES (LOPINAVIR/RITONAVIR) (LOPINAVIR/RITONAV [Suspect]
     Indication: HIV INFECTION
     Dosage: SEE IMAGE
     Route: 048
     Dates: start: 20020513, end: 20020715
  2. KALETRA SOFT GELATIN CAPSULES (LOPINAVIR/RITONAVIR) (LOPINAVIR/RITONAV [Suspect]
     Indication: HIV INFECTION
     Dosage: SEE IMAGE
     Route: 048
     Dates: start: 20030409, end: 20030409
  3. NELFINAVIR MESILATE [Suspect]
     Indication: HIV INFECTION
     Dosage: PER ORAL
     Route: 048
     Dates: start: 20030425
  4. VIREAD [Suspect]
     Indication: HIV INFECTION
     Dosage: SEE IMAGE
     Route: 048
     Dates: start: 20030409, end: 20030409
  5. VIREAD [Suspect]
     Indication: HIV INFECTION
     Dosage: SEE IMAGE
     Route: 048
     Dates: start: 20030425
  6. EFAVIRENZ [Concomitant]
  7. BERIZYM [Concomitant]
  8. ABACAVIR SULFATE [Concomitant]
  9. LAMIVUDINE [Concomitant]
  10. DIDANOSINE [Concomitant]

REACTIONS (5)
  - ARRHYTHMIA [None]
  - BRADYCARDIA [None]
  - DIARRHOEA [None]
  - EXTRASYSTOLES [None]
  - VENTRICULAR EXTRASYSTOLES [None]
